FAERS Safety Report 5966076-5 (Version None)
Quarter: 2008Q4

REPORT INFORMATION
  Report Type: 
  Country: None (occurrence: None)
  Receive Date: 20081125
  Receipt Date: 20081031
  Transmission Date: 20090506
  Serious: No
  Sender: FDA-Public Use
  Company Number: US-AMGEN-KDL316792

PATIENT
  Sex: Male

DRUGS (1)
  1. ENBREL [Suspect]
     Indication: PSORIASIS
     Route: 058
     Dates: start: 20070801

REACTIONS (5)
  - INJECTION SITE HAEMORRHAGE [None]
  - NAIL DISORDER [None]
  - PSORIASIS [None]
  - RHINORRHOEA [None]
  - SKIN LACERATION [None]
